FAERS Safety Report 8822541 (Version 4)
Quarter: 2013Q1

REPORT INFORMATION
  Report Type: Spontaneous
  Country: ES (occurrence: ES)
  Receive Date: 20121003
  Receipt Date: 20130131
  Transmission Date: 20140127
  Serious: Yes (Hospitalization, Other)
  Sender: FDA-Public Use
  Company Number: ES-PFIZER INC-2012244020

PATIENT
  Age: 57 Year
  Sex: Male

DRUGS (10)
  1. TRANGOREX [Suspect]
     Indication: PROPHYLAXIS
     Dosage: 200MG, 1-0-0
     Route: 048
     Dates: start: 2008
  2. ESPIRONOLACTONA [Concomitant]
     Dosage: UNK
     Dates: start: 20120820
  3. ADIRO [Concomitant]
     Dosage: 300 MG, 1X/DAY (0-1-0)
  4. RANITIDINA [Concomitant]
     Dosage: 1 DF, 1X/DAY (0-0-1)
  5. SEGURIL [Concomitant]
     Dosage: 1-1/2-0
  6. COROPRES [Concomitant]
     Dosage: 6.25 MG, 2X/DAY (1-0-1)
  7. SINTROM [Concomitant]
     Dosage: ACCORDING TO LABORATORY PATTERN
  8. SEROXAT [Concomitant]
     Dosage: 1 DF, 1X/DAY (1-0-0)
  9. SIMVASTATIN [Concomitant]
     Dosage: 10 MG, 1X/DAY (0-0-1)
  10. PAROXETINE HYDROCHLORIDE [Concomitant]
     Dosage: UNK

REACTIONS (13)
  - Hyperthyroidism [Not Recovered/Not Resolved]
  - Decubitus ulcer [Unknown]
  - Dyspnoea exertional [Unknown]
  - Dizziness [Unknown]
  - Asthenia [Unknown]
  - Bradycardia [Unknown]
  - Hypotension [Unknown]
  - Cyanosis [Unknown]
  - Pulmonary embolism [Unknown]
  - Pulmonary infarction [Unknown]
  - Hypothyroidism [Recovered/Resolved]
  - Hypertension [Unknown]
  - Obesity [Unknown]
